FAERS Safety Report 8920320 (Version 2)
Quarter: 2013Q1

REPORT INFORMATION
  Report Type: Spontaneous
  Country: DE (occurrence: DE)
  Receive Date: 20121121
  Receipt Date: 20130125
  Transmission Date: 20140127
  Serious: Yes (Life-Threatening, Hospitalization)
  Sender: FDA-Public Use
  Company Number: DE-B.I. PHARMACEUTICALS,INC./RIDGEFIELD-2012-DE-02741DE

PATIENT
  Age: 74 Year
  Sex: Male

DRUGS (6)
  1. PRADAXA [Suspect]
     Indication: ATRIAL FIBRILLATION
     Dosage: 300 MG
     Dates: start: 20120104, end: 20120928
  2. PRADAXA [Suspect]
     Dosage: 220 MG
  3. PANTOPRAZOL [Concomitant]
     Indication: DYSPEPSIA
     Dosage: 20 MG
     Route: 048
     Dates: start: 201008
  4. PANTOPRAZOL [Concomitant]
     Indication: PROPHYLAXIS
  5. BISOPROLOL [Concomitant]
     Indication: ARRHYTHMIA
     Dosage: 0.5 ANZ
     Route: 048
     Dates: start: 200604
  6. DEKRISTOL [Concomitant]
     Indication: VITAMIN D DEFICIENCY
     Dosage: 2000 NR
     Route: 048
     Dates: start: 20120104

REACTIONS (8)
  - Pleural effusion [Unknown]
  - Haemothorax [Not Recovered/Not Resolved]
  - Nasopharyngitis [Unknown]
  - Fatigue [Unknown]
  - Night sweats [Unknown]
  - Cough [Unknown]
  - Vomiting [Unknown]
  - Weight decreased [Unknown]
